FAERS Safety Report 21803615 (Version 2)
Quarter: 2023Q1

REPORT INFORMATION
  Report Type: Report from Study
  Country: US (occurrence: US)
  Receive Date: 20230102
  Receipt Date: 20230102
  Transmission Date: 20230418
  Serious: No
  Sender: FDA-Public Use
  Company Number: US-ABBVIE-4243582

PATIENT
  Age: 64 Year
  Sex: Male

DRUGS (2)
  1. HUMIRA [Suspect]
     Active Substance: ADALIMUMAB
     Indication: Rheumatoid arthritis
     Route: 058
  2. HUMIRA [Suspect]
     Active Substance: ADALIMUMAB
     Route: 058

REACTIONS (7)
  - Joint noise [Unknown]
  - Therapeutic product effect decreased [Not Recovered/Not Resolved]
  - Arthralgia [Unknown]
  - Joint swelling [Unknown]
  - Joint stiffness [Unknown]
  - Myalgia [Unknown]
  - Tenderness [Unknown]

NARRATIVE: CASE EVENT DATE: 20221101
